FAERS Safety Report 15077228 (Version 4)
Quarter: 2018Q3

REPORT INFORMATION
  Report Type: Report from Study
  Country: US (occurrence: US)
  Receive Date: 20180627
  Receipt Date: 20180906
  Transmission Date: 20181010
  Serious: Yes (Hospitalization)
  Sender: FDA-Public Use
  Company Number: US-ACTELION-A-US2018-174171

PATIENT
  Age: 44 Year
  Sex: Female

DRUGS (22)
  1. ADVAIR HFA [Concomitant]
     Active Substance: FLUTICASONE PROPIONATE\SALMETEROL XINAFOATE
  2. FLUCONAZOLE. [Concomitant]
     Active Substance: FLUCONAZOLE
  3. AMOXICILLIN AND CLAVULA. POTASSIUM [Concomitant]
     Active Substance: AMOXICILLIN\CLAVULANATE POTASSIUM
  4. DILAUDID [Concomitant]
     Active Substance: HYDROMORPHONE HYDROCHLORIDE
  5. DIPHENHYDRAMINE. [Concomitant]
     Active Substance: DIPHENHYDRAMINE
  6. SILDENAFIL. [Concomitant]
     Active Substance: SILDENAFIL
  7. HYDROCORTISONE. [Concomitant]
     Active Substance: HYDROCORTISONE
  8. POTASSIUM [Concomitant]
     Active Substance: POTASSIUM
  9. COMBIVENT [Concomitant]
     Active Substance: ALBUTEROL SULFATE\IPRATROPIUM BROMIDE
  10. OSELTAMIVIR [Concomitant]
     Active Substance: OSELTAMIVIR
  11. PHENERGAN [Concomitant]
     Active Substance: PROMETHAZINE HYDROCHLORIDE
  12. OXYCODONE [Concomitant]
     Active Substance: OXYCODONE
  13. OPSUMIT [Suspect]
     Active Substance: MACITENTAN
     Indication: PULMONARY HYPERTENSION
     Dosage: 10 MG, QD
     Route: 048
     Dates: start: 20180420
  14. FOLIC ACID. [Concomitant]
     Active Substance: FOLIC ACID
  15. DOCUSATE SODIUM. [Concomitant]
     Active Substance: DOCUSATE SODIUM
  16. LOSARTAN. [Concomitant]
     Active Substance: LOSARTAN
  17. IBUPROFEN. [Concomitant]
     Active Substance: IBUPROFEN
  18. ENOXAPARIN [Concomitant]
     Active Substance: ENOXAPARIN
  19. TRIAMCINOLONE [Concomitant]
     Active Substance: TRIAMCINOLONE
  20. HYDROXYUREA. [Concomitant]
     Active Substance: HYDROXYUREA
  21. LACTULOSE. [Concomitant]
     Active Substance: LACTULOSE
  22. FUROSEMIDE. [Concomitant]
     Active Substance: FUROSEMIDE

REACTIONS (3)
  - Sickle cell anaemia with crisis [Unknown]
  - Haemoglobin decreased [Unknown]
  - Platelet count decreased [Unknown]

NARRATIVE: CASE EVENT DATE: 20180525
